FAERS Safety Report 7672779-7 (Version None)
Quarter: 2011Q3

REPORT INFORMATION
  Report Type: 
  Country: None (occurrence: None)
  Receive Date: 20110804
  Receipt Date: 20110729
  Transmission Date: 20111222
  Serious: Yes (Other)
  Sender: FDA-Public Use
  Company Number: SP03868

PATIENT
  Age: 68 Year
  Sex: Male
  Weight: 72 kg

DRUGS (1)
  1. MOVIPREP [Suspect]
     Indication: BOWEL PREPARATION
     Dosage: ORAL
     Route: 048
     Dates: start: 20110117

REACTIONS (7)
  - DRUG HYPERSENSITIVITY [None]
  - TROPONIN T INCREASED [None]
  - PYREXIA [None]
  - URTICARIA [None]
  - CIRCULATORY COLLAPSE [None]
  - DIARRHOEA [None]
  - LEUKOCYTOSIS [None]
